FAERS Safety Report 5654911-X (Version None)
Quarter: 2008Q1

REPORT INFORMATION
  Report Type: 
  Country: None (occurrence: None)
  Receive Date: 20080307
  Receipt Date: 20071026
  Transmission Date: 20080703
  Serious: Yes (Other)
  Sender: FDA-Public Use
  Company Number: A0678407A

PATIENT
  Age: 74 Year
  Sex: Male

DRUGS (3)
  1. REQUIP [Suspect]
     Indication: PARKINSON'S DISEASE
     Dosage: 5MG THREE TIMES PER DAY
     Route: 048
     Dates: start: 20030101
  2. STALEVO 100 [Concomitant]
     Dosage: 150U FIVE TIMES PER DAY
     Route: 048
  3. SINEMET [Concomitant]
     Route: 048

REACTIONS (2)
  - HALLUCINATION [None]
  - URINARY TRACT INFECTION [None]
